FAERS Safety Report 19219728 (Version 10)
Quarter: 2021Q3

REPORT INFORMATION
  Report Type: Spontaneous
  Country: US (occurrence: US)
  Receive Date: 20210506
  Receipt Date: 20210917
  Transmission Date: 20211014
  Serious: Yes (Hospitalization)
  Sender: FDA-Public Use
  Company Number: US-GLOBAL BLOOD THERAPEUTICS INC-US-GBT-21-01414

PATIENT
  Age: 51 Year
  Sex: Female

DRUGS (9)
  1. VITAMIN C [Concomitant]
     Active Substance: ASCORBIC ACID
     Indication: PRODUCT USED FOR UNKNOWN INDICATION
     Dosage: NOT PROVIDED
  2. ADEMPAS [Concomitant]
     Active Substance: RIOCIGUAT
     Indication: PRODUCT USED FOR UNKNOWN INDICATION
     Dosage: NOT PROVIDED.
     Dates: start: 202104
  3. VITAMIN D [Concomitant]
     Active Substance: VITAMIN D NOS
     Indication: PRODUCT USED FOR UNKNOWN INDICATION
     Dosage: NOT PROVIDED
  4. OPSUMIT [Concomitant]
     Active Substance: MACITENTAN
     Indication: PRODUCT USED FOR UNKNOWN INDICATION
     Dosage: NOT PROVIDED.
  5. FOLIC ACID. [Concomitant]
     Active Substance: FOLIC ACID
     Indication: PRODUCT USED FOR UNKNOWN INDICATION
     Dosage: NOT PROVIDED
  6. PEPCID [Concomitant]
     Active Substance: FAMOTIDINE
     Indication: PRODUCT USED FOR UNKNOWN INDICATION
     Dosage: NOT PROVIDED
  7. VITAMIN B12 [Concomitant]
     Active Substance: CYANOCOBALAMIN
     Indication: PRODUCT USED FOR UNKNOWN INDICATION
     Dosage: NOT PROVIDED
  8. OXBRYTA [Suspect]
     Active Substance: VOXELOTOR
     Indication: SICKLE CELL ANAEMIA WITH CRISIS
     Route: 048
     Dates: start: 20210325
  9. LOVENOX [Concomitant]
     Active Substance: ENOXAPARIN SODIUM
     Indication: PRODUCT USED FOR UNKNOWN INDICATION
     Dosage: NOT PROVIDED

REACTIONS (13)
  - Sickle cell anaemia with crisis [Not Recovered/Not Resolved]
  - Gastroenteritis viral [Recovered/Resolved]
  - Pneumonia [Unknown]
  - Fluid retention [Unknown]
  - Sickle cell anaemia with crisis [Unknown]
  - Sickle cell anaemia with crisis [Unknown]
  - Sickle cell anaemia with crisis [Unknown]
  - Pyrexia [Unknown]
  - Secretion discharge [Unknown]
  - Sickle cell anaemia with crisis [Unknown]
  - Sickle cell anaemia with crisis [Unknown]
  - Dyspnoea [Not Recovered/Not Resolved]
  - Respiratory tract congestion [Unknown]

NARRATIVE: CASE EVENT DATE: 2021
